FAERS Safety Report 10602875 (Version 1)
Quarter: 2014Q4

REPORT INFORMATION
  Report Type: Spontaneous
  Country: DE (occurrence: DE)
  Receive Date: 20141124
  Receipt Date: 20141124
  Transmission Date: 20150529
  Serious: Yes (Other)
  Sender: FDA-Public Use
  Company Number: DE-ABBVIE-14P-062-1311696-00

PATIENT
  Sex: Male

DRUGS (1)
  1. ERGENYL (VALPROATE SODIUM) [Suspect]
     Active Substance: VALPROIC ACID
     Indication: PRODUCT USED FOR UNKNOWN INDICATION
     Route: 065

REACTIONS (3)
  - Parkinson^s disease [Unknown]
  - Confusional state [Unknown]
  - Aggression [Unknown]
